FAERS Safety Report 19776226 (Version 1)
Quarter: 2021Q3

REPORT INFORMATION
  Report Type: Spontaneous
  Country: SY (occurrence: SY)
  Receive Date: 20210902
  Receipt Date: 20210902
  Transmission Date: 20211014
  Serious: Yes (Hospitalization)
  Sender: FDA-Public Use
  Company Number: SY-LUPIN PHARMACEUTICALS INC.-2021-16155

PATIENT
  Age: 3 Year
  Sex: Male

DRUGS (4)
  1. IPRATROPIUM [Suspect]
     Active Substance: IPRATROPIUM
     Indication: PRIMARY CILIARY DYSKINESIA
     Dosage: NEBULISED IPRATROPIUM?BROMIDE
     Route: 045
  2. ALBUTEROL SULFATE. [Suspect]
     Active Substance: ALBUTEROL SULFATE
     Indication: PRIMARY CILIARY DYSKINESIA
     Dosage: UNK (V)
     Route: 045
  3. MAGNESIUM [Suspect]
     Active Substance: MAGNESIUM
     Indication: PRIMARY CILIARY DYSKINESIA
     Dosage: UNK
     Route: 065
  4. METHYLPREDNISOLONE. [Suspect]
     Active Substance: METHYLPREDNISOLONE
     Indication: PRIMARY CILIARY DYSKINESIA
     Dosage: UNK
     Route: 065

REACTIONS (2)
  - Drug ineffective [Unknown]
  - Off label use [None]
